FAERS Safety Report 11512002 (Version 2)
Quarter: 2015Q4

REPORT INFORMATION
  Report Type: Spontaneous
  Country: BR (occurrence: BR)
  Receive Date: 20150916
  Receipt Date: 20151110
  Transmission Date: 20160304
  Serious: Yes (Hospitalization)
  Sender: FDA-Public Use
  Company Number: BR-ROCHE-1634024

PATIENT
  Age: 67 Year
  Sex: Female
  Weight: 90 kg

DRUGS (4)
  1. RIVOTRIL [Suspect]
     Active Substance: CLONAZEPAM
     Indication: SEIZURE
     Dosage: 2 TABLETS
     Route: 048
  2. RIVOTRIL [Suspect]
     Active Substance: CLONAZEPAM
     Route: 048
  3. PURAN [Concomitant]
     Active Substance: LEVOTHYROXINE SODIUM
     Indication: THYROID DISORDER
     Route: 065
  4. GARDENAL [Concomitant]
     Active Substance: PHENOBARBITAL
     Route: 065

REACTIONS (6)
  - Blood cholesterol abnormal [Recovered/Resolved]
  - Varicose vein [Not Recovered/Not Resolved]
  - Product blister packaging issue [Unknown]
  - Gait disturbance [Not Recovered/Not Resolved]
  - Scoliosis [Unknown]
  - Exostosis [Unknown]

NARRATIVE: CASE EVENT DATE: 2013
